FAERS Safety Report 6692990-1 (Version None)
Quarter: 2010Q2

REPORT INFORMATION
  Report Type: 
  Country: None (occurrence: None)
  Receive Date: 20100419
  Receipt Date: 20100408
  Transmission Date: 20101027
  Serious: Yes (Death)
  Sender: FDA-Public Use
  Company Number: 2010-1136

PATIENT

DRUGS (1)
  1. SOMATULINE LP 30MG (SOMATULINE SR) (LANREOTIDE) (LANREOTIDE ACETATE) [Suspect]
     Indication: DRUG USE FOR UNKNOWN INDICATION
     Dosage: (30 MG, SINGLE CYCLE)

REACTIONS (1)
  - DEATH [None]
